FAERS Safety Report 7396605-9 (Version None)
Quarter: 2011Q2

REPORT INFORMATION
  Report Type: 
  Country: None (occurrence: None)
  Receive Date: 20110406
  Receipt Date: 20110323
  Transmission Date: 20111010
  Serious: Yes (Other)
  Sender: FDA-Public Use
  Company Number: PHHY2010SG69599

PATIENT
  Sex: Female

DRUGS (1)
  1. TASIGNA [Suspect]
     Indication: CHRONIC MYELOID LEUKAEMIA
     Dosage: 400 MG, BID
     Dates: start: 20100501

REACTIONS (5)
  - FURUNCLE [None]
  - DANDRUFF [None]
  - FOLLICULITIS [None]
  - ALOPECIA [None]
  - WEIGHT DECREASED [None]
